FAERS Safety Report 21053312 (Version 1)
Quarter: 2022Q3

REPORT INFORMATION
  Report Type: Spontaneous
  Country: IT (occurrence: IT)
  Receive Date: 20220707
  Receipt Date: 20220707
  Transmission Date: 20221027
  Serious: Yes (Hospitalization)
  Sender: FDA-Public Use
  Company Number: IT-MYLANLABS-2022M1051345

PATIENT
  Age: 50 Year
  Sex: Male

DRUGS (6)
  1. EPINEPHRINE [Suspect]
     Active Substance: EPINEPHRINE
     Indication: Hypotension
     Dosage: UNK
     Route: 065
  2. EPINEPHRINE [Suspect]
     Active Substance: EPINEPHRINE
     Indication: Haemodynamic instability
  3. AMIODARONE [Suspect]
     Active Substance: AMIODARONE
     Indication: Ventricular tachycardia
     Dosage: UNK, INFUSION
     Route: 065
  4. SODIUM NITROPRUSSIDE [Suspect]
     Active Substance: SODIUM NITROPRUSSIDE
     Indication: Hypotension
     Dosage: UNK
     Route: 065
  5. MILRINONE [Concomitant]
     Active Substance: MILRINONE
     Indication: Ventricular arrhythmia
     Dosage: UNK
     Route: 065
  6. LANDIOLOL [Concomitant]
     Active Substance: LANDIOLOL
     Indication: Tachyarrhythmia
     Dosage: 3MCG/KG/MIN INFUSION
     Route: 065

REACTIONS (1)
  - Drug ineffective [Unknown]
